FAERS Safety Report 16010512 (Version 3)
Quarter: 2020Q4

REPORT INFORMATION
  Report Type: Spontaneous
  Country: US (occurrence: US)
  Receive Date: 20190225
  Receipt Date: 20201110
  Transmission Date: 20210113
  Serious: No
  Sender: FDA-Public Use
  Company Number: US-PFIZER INC-2019073882

PATIENT
  Age: 64 Year
  Sex: Female

DRUGS (3)
  1. LYRICA [Suspect]
     Active Substance: PREGABALIN
     Indication: MIGRAINE
     Dosage: 100 MG, 3X/DAY
     Route: 048
     Dates: start: 20151030
  2. LYRICA [Suspect]
     Active Substance: PREGABALIN
     Dosage: 100 MG, 2X/DAY
     Route: 048
     Dates: start: 20190805
  3. LYRICA [Suspect]
     Active Substance: PREGABALIN
     Dosage: 100 MG
     Dates: start: 20200129

REACTIONS (5)
  - Product dose omission issue [Unknown]
  - Drug effective for unapproved indication [Unknown]
  - Off label use [Unknown]
  - Headache [Unknown]
  - Product use in unapproved indication [Unknown]

NARRATIVE: CASE EVENT DATE: 20151030
